FAERS Safety Report 20053659 (Version 1)
Quarter: 2021Q4

REPORT INFORMATION
  Report Type: Spontaneous
  Country: KZ (occurrence: KZ)
  Receive Date: 20211110
  Receipt Date: 20211110
  Transmission Date: 20220303
  Serious: Yes (Hospitalization)
  Sender: FDA-Public Use
  Company Number: KZ-LUPIN PHARMACEUTICALS INC.-2021-21872

PATIENT
  Age: 2 Year
  Sex: Female

DRUGS (3)
  1. CEFIXIME [Suspect]
     Active Substance: CEFIXIME
     Indication: Sepsis
     Dosage: UNK
     Route: 065
  2. AMIKACIN [Suspect]
     Active Substance: AMIKACIN
     Indication: Sepsis
     Dosage: UNK
     Route: 065
  3. METHOTREXATE [Concomitant]
     Active Substance: METHOTREXATE
     Indication: Sepsis
     Dosage: HIGH-DOSE METHOTREXATE ACCORDING TO ALL BFM IC 2002 BLOCK HR1 PROTOCOL
     Route: 065

REACTIONS (1)
  - Drug ineffective [Unknown]
